FAERS Safety Report 14704822 (Version 16)
Quarter: 2018Q3

REPORT INFORMATION
  Report Type: Spontaneous
  Country: DE (occurrence: DE)
  Receive Date: 20180402
  Receipt Date: 20180719
  Transmission Date: 20181010
  Serious: Yes (Hospitalization, Other)
  Sender: FDA-Public Use
  Company Number: DE-PFIZER INC-2018128582

PATIENT
  Age: 82 Year
  Sex: Female
  Weight: 56 kg

DRUGS (42)
  1. PREDNISOLONE. [Suspect]
     Active Substance: PREDNISOLONE
     Dosage: 5 MG, UNK
     Route: 065
  2. ASPIRIN. [Suspect]
     Active Substance: ASPIRIN
     Dosage: 100 MG, UNK
     Route: 065
  3. SODIUM CHLORIDE. [Concomitant]
     Active Substance: SODIUM CHLORIDE
     Dosage: UNK UNK, QD
     Route: 065
  4. CORDAREX [Concomitant]
     Active Substance: AMIODARONE
     Dosage: 200 MG, QD
  5. PANTOPRAZOLE [Suspect]
     Active Substance: PANTOPRAZOLE
     Dosage: 20 MG, QD
     Route: 065
  6. TORASEMID [Suspect]
     Active Substance: TORSEMIDE
     Dosage: 45 MG, QD
     Route: 065
     Dates: start: 20170124, end: 20170124
  7. SPASMEX (TROSPIUM CHLORIDE) [Suspect]
     Active Substance: TROSPIUM CHLORIDE
     Dosage: 15 MG, DAILY
     Route: 065
  8. MOVICOL [Suspect]
     Active Substance: POLYETHYLENE GLYCOL 3350\POTASSIUM CHLORIDE\SODIUM BICARBONATE\SODIUM CHLORIDE
     Dosage: UNK
     Route: 065
     Dates: start: 20170124
  9. AMIODARONE HCL [Suspect]
     Active Substance: AMIODARONE HYDROCHLORIDE
     Dosage: 200 MG, UNK
     Route: 065
  10. BISOHEXAL [Suspect]
     Active Substance: BISOPROLOL FUMARATE
     Dosage: 5 MG, QD
     Route: 065
     Dates: start: 2016
  11. HUMIRA [Suspect]
     Active Substance: ADALIMUMAB
     Dosage: UNK UNK,QOW
     Route: 058
     Dates: start: 20120411, end: 20160927
  12. LEVOSIMENDAN [Concomitant]
     Active Substance: LEVOSIMENDAN
     Dosage: UNK
  13. FRAXIPARIN [Concomitant]
     Active Substance: NADROPARIN CALCIUM
     Dosage: 5700 IU, QD
     Route: 058
  14. LIXIANA [Suspect]
     Active Substance: EDOXABAN TOSYLATE
     Dosage: 30 MG, QD
     Route: 065
  15. HUMIRA [Suspect]
     Active Substance: ADALIMUMAB
     Dosage: 1 DF, QOW
     Route: 058
     Dates: start: 20161115
  16. HUMIRA [Suspect]
     Active Substance: ADALIMUMAB
     Dosage: UNK
     Route: 058
     Dates: start: 20120111, end: 20160927
  17. BIFITERAL [Suspect]
     Active Substance: LACTULOSE
     Dosage: UNK
     Route: 065
     Dates: start: 20170124
  18. ENOXAPARIN [Concomitant]
     Active Substance: ENOXAPARIN
     Dosage: 0.6 MG, QD
     Route: 065
  19. BISOPROLOL HEMIFUMARATE [Suspect]
     Active Substance: BISOPROLOL FUMARATE
     Dosage: 5 MG, 1X/DAY
     Route: 065
     Dates: start: 2016
  20. METOPROLOL SUCCINATE. [Suspect]
     Active Substance: METOPROLOL SUCCINATE
     Dosage: 95 MG, UNK
     Route: 065
     Dates: start: 20170124
  21. LIXIANA [Suspect]
     Active Substance: EDOXABAN TOSYLATE
     Indication: ATRIAL FIBRILLATION
     Dosage: 30 MG, DAILY
     Route: 065
     Dates: start: 20160930
  22. XIPAMIDE [Suspect]
     Active Substance: XIPAMIDE
     Dosage: 20 MG, UNK
     Route: 065
     Dates: end: 20170124
  23. TORASEMID [Suspect]
     Active Substance: TORSEMIDE
     Dosage: 5 MG, QD
     Route: 065
  24. TORASEMID [Suspect]
     Active Substance: TORSEMIDE
     Dosage: 15 MG, QD
     Route: 065
  25. DEKRISTOL [Suspect]
     Active Substance: CHOLECALCIFEROL
     Dosage: 20000 IU, WEEKLY
     Route: 065
  26. LOSARTAN COMP [Suspect]
     Active Substance: HYDROCHLOROTHIAZIDE\LOSARTAN POTASSIUM
     Dosage: 100 / 25 MG, QD
     Route: 065
     Dates: start: 2016
  27. SPIRO COMP [Suspect]
     Active Substance: FUROSEMIDE\SPIRONOLACTONE
     Dosage: UNK
     Route: 065
     Dates: end: 201610
  28. SIMVASTATIN. [Suspect]
     Active Substance: SIMVASTATIN
     Dosage: 40 MG, UNK
     Route: 065
  29. VALSARTAN. [Suspect]
     Active Substance: VALSARTAN
     Dosage: 160 MG, UNK
     Route: 065
  30. HUMIRA [Suspect]
     Active Substance: ADALIMUMAB
     Indication: RHEUMATOID ARTHRITIS
     Dosage: UNK, QW
     Route: 058
     Dates: start: 20120111, end: 20160927
  31. FOLIC ACID. [Concomitant]
     Active Substance: FOLIC ACID
     Dosage: 5 MG, UNK
     Dates: start: 20170124
  32. TOREM [Concomitant]
     Active Substance: TORSEMIDE
     Dosage: 5 MG, QD
     Route: 065
  33. BONTALIS (CLOPIDOGREL BISULFATE) [Suspect]
     Active Substance: CLOPIDOGREL BISULFATE
     Dosage: UNK
     Route: 048
     Dates: start: 20170124
  34. SPASMEX (TROSPIUM CHLORIDE) [Suspect]
     Active Substance: TROSPIUM CHLORIDE
     Dosage: 45 MG, DAILY
     Route: 065
     Dates: start: 20170124
  35. RIOPAN (MAGALDRAT) [Concomitant]
     Active Substance: MAGALDRATE
     Dosage: DAILY DOSE: 4800 MG MILLGRAM(S) EVERY DAYS
     Route: 048
  36. CLOPIDOGREL [Suspect]
     Active Substance: CLOPIDOGREL BISULFATE
     Dosage: UNK
     Route: 048
     Dates: start: 20170124
  37. FENTANYL TRANSDERMAL SYSTEM [Suspect]
     Active Substance: FENTANYL
     Dosage: 75 MICROGRAM/HOUR AND PLASTER CHANGE EVERY 3 DAYS
     Route: 062
  38. VOLTAREN RESINAT [Suspect]
     Active Substance: DICLOFENAC
     Dosage: 2 (UNITS: UNKNOWN), DAILY
     Route: 065
     Dates: start: 201610, end: 201610
  39. SPIRO COMP [Suspect]
     Active Substance: FUROSEMIDE\SPIRONOLACTONE
     Dosage: 50/20 MG, QD
     Route: 065
     Dates: start: 201610
  40. LEVOSIMENDAN [Concomitant]
     Active Substance: LEVOSIMENDAN
     Dosage: UNK
     Route: 065
     Dates: start: 201611, end: 201611
  41. TOREM [Concomitant]
     Active Substance: TORSEMIDE
     Dosage: UNK UNK, 1X/DAY
     Route: 065
  42. AMIODARON [Concomitant]
     Active Substance: AMIODARONE
     Dosage: 200 MG, UNK
     Route: 065

REACTIONS (54)
  - Cardiogenic shock [Unknown]
  - Seroma [Unknown]
  - Vomiting [Unknown]
  - Haematuria [Unknown]
  - Hiatus hernia [Unknown]
  - Aplastic anaemia [Unknown]
  - Joint dislocation [Unknown]
  - Groin pain [Unknown]
  - Mitral valve incompetence [Unknown]
  - Pulmonary hypertension [Unknown]
  - Arthralgia [Unknown]
  - Dyspnoea [Unknown]
  - Hyponatraemia [Unknown]
  - Haemarthrosis [Unknown]
  - Femoral hernia incarcerated [Recovered/Resolved]
  - Eructation [Unknown]
  - Gait disturbance [Unknown]
  - Coronary artery disease [Unknown]
  - Anuria [Recovered/Resolved]
  - Tricuspid valve incompetence [Unknown]
  - Gastrointestinal haemorrhage [Recovered/Resolved]
  - Myelodysplastic syndrome [Unknown]
  - Faecaloma [Unknown]
  - Urinary tract infection [Unknown]
  - Left ventricular dysfunction [Recovered/Resolved]
  - Hepatic cyst [Unknown]
  - Osteopenia [Recovered/Resolved]
  - Tachyarrhythmia [Unknown]
  - Postoperative wound infection [Recovered/Resolved]
  - Wound infection pseudomonas [Unknown]
  - Inflammatory marker increased [Recovered/Resolved]
  - Cardiovascular disorder [Unknown]
  - Pancreatic steatosis [Unknown]
  - Lymphatic fistula [Recovered/Resolved]
  - Diverticulum intestinal [Unknown]
  - Decreased appetite [Unknown]
  - Arterial haemorrhage [Recovered/Resolved]
  - Impaired healing [Recovered/Resolved]
  - General physical health deterioration [Unknown]
  - Joint dislocation [Recovered/Resolved]
  - Acute kidney injury [Unknown]
  - Dyspepsia [Unknown]
  - Hyperkalaemia [Unknown]
  - Syncope [Unknown]
  - Aortic valve stenosis [Unknown]
  - Anaemia [Recovered/Resolved]
  - Abdominal discomfort [Unknown]
  - Urinary retention [Unknown]
  - Wound dehiscence [Recovered/Resolved]
  - Escherichia infection [Unknown]
  - Oedema peripheral [Unknown]
  - Aortic arteriosclerosis [Unknown]
  - Peripheral swelling [Recovered/Resolved]
  - Myocardial infarction [Recovered/Resolved]

NARRATIVE: CASE EVENT DATE: 201603
